FAERS Safety Report 9257075 (Version 1)
Quarter: 2013Q2

REPORT INFORMATION
  Report Type: Spontaneous
  Country: US (occurrence: None)
  Receive Date: 20130424
  Receipt Date: 20130424
  Transmission Date: 20140414
  Serious: Yes (Other)
  Sender: FDA-Public Use
  Company Number: None

PATIENT
  Age: 69 Year
  Sex: Female
  Weight: 107.96 kg

DRUGS (2)
  1. JANUVIA [Suspect]
     Indication: DIABETES MELLITUS
  2. JANUVIA [Suspect]
     Indication: BLOOD GLUCOSE INCREASED

REACTIONS (3)
  - Pancreatitis [None]
  - Nausea [None]
  - Abdominal pain [None]
